FAERS Safety Report 8555132-3 (Version None)
Quarter: 2012Q3

REPORT INFORMATION
  Report Type: 
  Country: None (occurrence: None)
  Receive Date: 20120731
  Receipt Date: 20120724
  Transmission Date: 20120928
  Serious: Yes (Other)
  Sender: FDA-Public Use
  Company Number: BR-PFIZER INC-2012178861

PATIENT
  Age: 64 Year
  Sex: Male

DRUGS (3)
  1. TIMOLOL MALEATE [Concomitant]
     Indication: INTRAOCULAR PRESSURE INCREASED
     Dosage: 2 DROPS TWICE DAILY
     Dates: start: 19820101
  2. ALPHAGAN [Concomitant]
     Indication: INTRAOCULAR PRESSURE INCREASED
     Dosage: 2 DROPS TWICE DAILY
  3. XALATAN [Suspect]
     Indication: GLAUCOMA
     Dosage: 3 UG (2 DROPS), 1X/DAY
     Route: 047
     Dates: start: 20000101

REACTIONS (2)
  - INCORRECT DOSE ADMINISTERED [None]
  - CATARACT [None]
